FAERS Safety Report 4579971-9 (Version None)
Quarter: 2005Q1

REPORT INFORMATION
  Report Type: 
  Country: None (occurrence: None)
  Receive Date: 20050210
  Receipt Date: 20050131
  Transmission Date: 20050727
  Serious: No
  Sender: FDA-Public Use
  Company Number: 2005-124843-NL

PATIENT
  Age: 75 Year
  Sex: Female

DRUGS (5)
  1. MIRTAZAPINE [Suspect]
     Indication: DEPRESSION
     Dosage: 7.5 MG QD, ORAL
     Route: 048
     Dates: start: 20050127, end: 20050127
  2. BISOPROLOL FUMARATE [Concomitant]
  3. AMLODIPINE BESYLATE [Concomitant]
  4. SIMVASTATIN [Concomitant]
  5. FLECAINIDE ACETATE [Concomitant]

REACTIONS (4)
  - DIZZINESS [None]
  - DYSSTASIA [None]
  - EYE PAIN [None]
  - PALPITATIONS [None]
